FAERS Safety Report 11535793 (Version 1)
Quarter: 2015Q3

REPORT INFORMATION
  Report Type: Spontaneous
  Country: US (occurrence: US)
  Receive Date: 20150922
  Receipt Date: 20150922
  Transmission Date: 20151125
  Serious: No
  Sender: FDA-Public Use
  Company Number: US-TEVA-593994ACC

PATIENT
  Sex: Female

DRUGS (1)
  1. PLAN B ONE-STEP [Suspect]
     Active Substance: LEVONORGESTREL
     Indication: POST COITAL CONTRACEPTION

REACTIONS (5)
  - Decreased appetite [Recovered/Resolved]
  - Menstruation irregular [Not Recovered/Not Resolved]
  - Intentional product misuse [Unknown]
  - Menstruation irregular [Recovered/Resolved]
  - Abdominal discomfort [Not Recovered/Not Resolved]
